FAERS Safety Report 20619828 (Version 1)
Quarter: 2022Q1

REPORT INFORMATION
  Report Type: Spontaneous
  Country: US (occurrence: US)
  Receive Date: 20220322
  Receipt Date: 20220322
  Transmission Date: 20220423
  Serious: Yes (Other)
  Sender: FDA-Public Use
  Company Number: US-SA-SAC20220316000216

PATIENT
  Age: 80 Year

DRUGS (3)
  1. PLAVIX [Suspect]
     Active Substance: CLOPIDOGREL BISULFATE
  2. APIXABAN [Suspect]
     Active Substance: APIXABAN
     Indication: Atrial fibrillation
     Dosage: TRADENAME TO BE CAPTURED :ELIQUIS
  3. ASPIRIN [Suspect]
     Active Substance: ASPIRIN

REACTIONS (2)
  - Myocardial infarction [Not Recovered/Not Resolved]
  - Atrial fibrillation [Unknown]
